FAERS Safety Report 6671756-2 (Version None)
Quarter: 2010Q2

REPORT INFORMATION
  Report Type: 
  Country: None (occurrence: None)
  Receive Date: 20100407
  Receipt Date: 20100324
  Transmission Date: 20101027
  Serious: Yes (Other)
  Sender: FDA-Public Use
  Company Number: -MYLANLABS-2010S1005111

PATIENT
  Age: 18 Year
  Sex: Male

DRUGS (2)
  1. AZATHIOPRINE [Suspect]
     Indication: BEHCET'S SYNDROME
  2. TACROLIMUS [Suspect]
     Indication: BEHCET'S SYNDROME
     Dates: start: 20060101

REACTIONS (3)
  - CHEST PAIN [None]
  - CONVULSION [None]
  - DYSPNOEA [None]
